FAERS Safety Report 11757342 (Version 1)
Quarter: 2015Q4

REPORT INFORMATION
  Report Type: Report from Study
  Country: US (occurrence: None)
  Receive Date: 20151117
  Receipt Date: 20151117
  Transmission Date: 20160304
  Serious: Yes (Hospitalization)
  Sender: FDA-Public Use
  Company Number: 2015US004812

PATIENT
  Age: 73 Year
  Sex: Female
  Weight: 88.4 kg

DRUGS (19)
  1. SPIRIVA [Concomitant]
     Active Substance: TIOTROPIUM BROMIDE MONOHYDRATE
  2. NITROGLYCERIN (GLYCERYL TRINITRATE) [Concomitant]
     Active Substance: NITROGLYCERIN
  3. PRADAXA [Concomitant]
     Active Substance: DABIGATRAN ETEXILATE MESYLATE
  4. LYRICA [Concomitant]
     Active Substance: PREGABALIN
  5. FUROSEMIDE (FUROSEMIDE) [Concomitant]
     Active Substance: FUROSEMIDE
  6. LANOXIN [Concomitant]
     Active Substance: DIGOXIN
  7. SERTRALINE [Concomitant]
     Active Substance: SERTRALINE HYDROCHLORIDE
  8. POTASSIUM (POTASSIUM) [Concomitant]
     Active Substance: POTASSIUM
  9. SYMBICORT [Concomitant]
     Active Substance: BUDESONIDE\FORMOTEROL FUMARATE DIHYDRATE
  10. PREDNISONE (PREDNISONE) [Concomitant]
     Active Substance: PREDNISONE
  11. NEUPRO [Concomitant]
     Active Substance: ROTIGOTINE
  12. DILTIAZEM (DILTIAZEM) [Concomitant]
     Active Substance: DILTIAZEM
  13. CARAFATE [Concomitant]
     Active Substance: SUCRALFATE
  14. METOLAZONE (METOLAZONE) (METOLAZONE) [Concomitant]
     Active Substance: METOLAZONE
  15. METFORMIN [Concomitant]
     Active Substance: METFORMIN HYDROCHLORIDE
  16. OMEPRAZOLE (OMEPRAZOLE) [Concomitant]
     Active Substance: OMEPRAZOLE
  17. MONTELUKAST [Concomitant]
     Active Substance: MONTELUKAST SODIUM
  18. COMBIVENT RESPIMAT [Concomitant]
     Active Substance: ALBUTEROL SULFATE\IPRATROPIUM BROMIDE
  19. GLASSIA [Suspect]
     Active Substance: .ALPHA.1-PROTEINASE INHIBITOR HUMAN
     Indication: ALPHA-1 ANTI-TRYPSIN DEFICIENCY
     Dosage: 5 BOTTLES WEEKLY/ 60 MG/KG, WEEKLY, INTRAVENOUS
     Route: 042

REACTIONS (3)
  - Oxygen saturation abnormal [None]
  - Pericardial effusion [None]
  - Pleural effusion [None]

NARRATIVE: CASE EVENT DATE: 20150224
